FAERS Safety Report 22236081 (Version 2)
Quarter: 2023Q2

REPORT INFORMATION
  Report Type: Report from Study
  Country: US (occurrence: US)
  Receive Date: 20230420
  Receipt Date: 20230512
  Transmission Date: 20230722
  Serious: Yes (Other)
  Sender: FDA-Public Use
  Company Number: US-ABBVIE-4310625

PATIENT
  Age: 62 Year
  Sex: Female

DRUGS (2)
  1. HUMIRA [Suspect]
     Active Substance: ADALIMUMAB
     Indication: Psoriatic arthropathy
     Dosage: CITRATE FREE?40MG
     Route: 058
     Dates: start: 20221102
  2. CELEBREX [Concomitant]
     Active Substance: CELECOXIB
     Indication: Psoriatic arthropathy

REACTIONS (5)
  - Hip surgery [Unknown]
  - Venous thrombosis [Recovering/Resolving]
  - Injection site bruising [Recovered/Resolved]
  - Arthralgia [Unknown]
  - Thrombosis [Recovered/Resolved]

NARRATIVE: CASE EVENT DATE: 20221201
